FAERS Safety Report 8675797 (Version 2)
Quarter: 2013Q2

REPORT INFORMATION
  Report Type: Spontaneous
  Country: IT (occurrence: IT)
  Receive Date: 20120720
  Receipt Date: 20130412
  Transmission Date: 20140414
  Serious: Yes (Hospitalization)
  Sender: FDA-Public Use
  Company Number: IT-BRISTOL-MYERS SQUIBB COMPANY-16758575

PATIENT
  Age: 80 Year
  Sex: Male

DRUGS (13)
  1. COUMADIN TABS 5 MG [Suspect]
     Indication: MYOCARDIAL ISCHAEMIA
     Dates: end: 20120519
  2. ALLOPURINOL [Concomitant]
  3. CARDIOASPIRIN [Concomitant]
     Dosage: TAB
     Route: 048
  4. LUVION [Concomitant]
     Dosage: TAB
  5. CORDARONE [Concomitant]
     Dosage: TAB
  6. LASIX [Concomitant]
     Dosage: TAB
  7. PANTORC [Concomitant]
     Dosage: TAB
  8. GARDENALE [Concomitant]
     Dosage: TAB
  9. ALIFLUS DISKUS [Concomitant]
     Dosage: 1DF=50/250 POWDER
     Route: 055
  10. TORVAST [Concomitant]
     Dosage: TAB
  11. CARDICOR [Concomitant]
     Dosage: TAB
  12. NOVOMIX [Concomitant]
     Dosage: 100U/ML SUSPENSION FOR INJECTION^?FLEXPEN
  13. NOVORAPID [Concomitant]
     Dosage: 1DF=100 U/ML SOLUTION FOR INJECTION?FLEXPEN

REACTIONS (9)
  - Hypotension [Recovered/Resolved]
  - Asthenia [Recovered/Resolved]
  - Presyncope [Recovered/Resolved]
  - Melaena [Recovered/Resolved]
  - Contusion [Recovered/Resolved]
  - Gastrointestinal haemorrhage [Recovered/Resolved]
  - Anaemia [Recovered/Resolved]
  - Overdose [Recovered/Resolved]
  - Drug administration error [Unknown]
